FAERS Safety Report 8346188-1 (Version None)
Quarter: 2012Q1

REPORT INFORMATION
  Report Type: 
  Country: None (occurrence: None)
  Receive Date: 20120315
  Receipt Date: 20110525
  Transmission Date: 20120608
  Serious: No
  Sender: FDA-Public Use
  Company Number: PHHY2011US37948

PATIENT
  Age: 33 Year
  Sex: Female

DRUGS (6)
  1. HERBAL PREPARATION (NO INGREDIENTS/SUBSTANCES) [Concomitant]
  2. MULTIVITAMIN [Concomitant]
  3. GILENYA [Suspect]
     Indication: MULTIPLE SCLEROSIS
     Dosage: 0.5 MG, QD, ORAL
     Route: 048
     Dates: start: 20110418
  4. BACLOFEN [Suspect]
     Indication: NYSTAGMUS
     Dosage: UNK UKN, UNK, ORAL
     Route: 048
  5. VITAMIN D [Concomitant]
  6. CALCIUM CARBONATE [Concomitant]

REACTIONS (4)
  - VOMITING [None]
  - PHOTOSENSITIVITY REACTION [None]
  - VISION BLURRED [None]
  - BACK PAIN [None]
